FAERS Safety Report 4321995-0 (Version None)
Quarter: 2004Q1

REPORT INFORMATION
  Report Type: 
  Country: None (occurrence: None)
  Receive Date: 20040319
  Receipt Date: 20040212
  Transmission Date: 20041129
  Serious: No
  Sender: FDA-Public Use
  Company Number: 200401118

PATIENT
  Age: 71 Year
  Sex: Female

DRUGS (3)
  1. LUMIGAN [Suspect]
     Indication: GLAUCOMA
     Dosage: DROP
     Route: 047
  2. CLARITIN [Concomitant]
  3. CELLUVISC [Concomitant]

REACTIONS (4)
  - ERYTHEMA OF EYELID [None]
  - EYE REDNESS [None]
  - FATIGUE [None]
  - VISION BLURRED [None]
